FAERS Safety Report 22294166 (Version 1)
Quarter: 2023Q2

REPORT INFORMATION
  Report Type: Spontaneous
  Country: US (occurrence: US)
  Receive Date: 20230508
  Receipt Date: 20230508
  Transmission Date: 20230721
  Serious: No
  Sender: FDA-Public Use
  Company Number: US-JNJFOC-20230462161

PATIENT

DRUGS (6)
  1. INVEGA SUSTENNA [Suspect]
     Active Substance: PALIPERIDONE PALMITATE
     Indication: Product used for unknown indication
     Route: 030
     Dates: start: 202212, end: 202301
  2. INVEGA SUSTENNA [Suspect]
     Active Substance: PALIPERIDONE PALMITATE
  3. INVEGA SUSTENNA [Suspect]
     Active Substance: PALIPERIDONE PALMITATE
  4. VRAYLAR [Concomitant]
     Active Substance: CARIPRAZINE
     Dates: start: 202212
  5. MIRTAZAPINE [Concomitant]
     Active Substance: MIRTAZAPINE
  6. LITHIUM [Concomitant]
     Active Substance: LITHIUM

REACTIONS (1)
  - Drug resistance [Unknown]
